FAERS Safety Report 4455343-2 (Version None)
Quarter: 2004Q3

REPORT INFORMATION
  Report Type: 
  Country: None (occurrence: None)
  Receive Date: 20040825
  Receipt Date: 20040604
  Transmission Date: 20050211
  Serious: No
  Sender: FDA-Public Use
  Company Number: 207018

PATIENT
  Age: 44 Year
  Sex: Male

DRUGS (2)
  1. RAPTIVA [Suspect]
     Indication: PSORIASIS
     Dosage: 0.9 ML,SINGLE,SUBCUTANEOUS; 1.3ML,1/WEEK,SUBCUTANEOUS
     Route: 058
     Dates: start: 20040527, end: 20040527
  2. RAPTIVA [Suspect]
     Indication: PSORIASIS
     Dosage: 0.9 ML,SINGLE,SUBCUTANEOUS; 1.3ML,1/WEEK,SUBCUTANEOUS
     Route: 058
     Dates: start: 20040603

REACTIONS (1)
  - DIZZINESS [None]
